FAERS Safety Report 5090849-7 (Version None)
Quarter: 2006Q3

REPORT INFORMATION
  Report Type: 
  Country: None (occurrence: None)
  Receive Date: 20060823
  Receipt Date: 20060810
  Transmission Date: 20061208
  Serious: Yes (Hospitalization)
  Sender: FDA-Public Use
  Company Number: 2006094232

PATIENT
  Age: 59 Year
  Sex: Male
  Weight: 43 kg

DRUGS (5)
  1. SUTENT [Suspect]
     Indication: GASTROINTESTINAL STROMAL TUMOUR
     Dosage: 50 MG (50 MG, DAILY EVERYDAY), ORAL
     Route: 048
     Dates: start: 20060118
  2. FERRIC SODIUM CITRATE                  (FERRIC SODIUM CITRATE) [Concomitant]
  3. UREA (UREA) [Concomitant]
  4. BETAMETHASONE/PYRROLNITRIN [Concomitant]
  5. AZULENE (AZULENE) [Concomitant]

REACTIONS (15)
  - ASPIRATION [None]
  - BLOOD ALBUMIN DECREASED [None]
  - CHOKING [None]
  - COLLAPSE OF LUNG [None]
  - DEPRESSED LEVEL OF CONSCIOUSNESS [None]
  - EMPHYSEMA [None]
  - HAEMOGLOBIN DECREASED [None]
  - HYPOXIA [None]
  - NEUTROPHIL COUNT DECREASED [None]
  - PLATELET COUNT DECREASED [None]
  - PNEUMOTHORAX [None]
  - RED BLOOD CELL COUNT DECREASED [None]
  - THERAPEUTIC RESPONSE DECREASED [None]
  - VOMITING [None]
  - WHITE BLOOD CELL COUNT DECREASED [None]
